FAERS Safety Report 5285265-9 (Version None)
Quarter: 2007Q2

REPORT INFORMATION
  Report Type: 
  Country: None (occurrence: None)
  Receive Date: 20070403
  Receipt Date: 20070322
  Transmission Date: 20071010
  Serious: Yes (Other)
  Sender: FDA-Public Use
  Company Number: NO-PFIZER INC-2007023627

PATIENT
  Sex: Female

DRUGS (4)
  1. MEDROL [Suspect]
     Indication: CANCER PAIN
  2. IBUX [Concomitant]
  3. OXYCONTIN [Concomitant]
  4. ALL OTHER THERAPEUTIC PRODUCTS [Concomitant]

REACTIONS (3)
  - HYPERVENTILATION [None]
  - HYPOAESTHESIA [None]
  - MUSCLE SPASMS [None]
